FAERS Safety Report 8314645-X (Version None)
Quarter: 2012Q2

REPORT INFORMATION
  Report Type: 
  Country: None (occurrence: None)
  Receive Date: 20120426
  Receipt Date: 20090302
  Transmission Date: 20120825
  Serious: Yes (Hospitalization)
  Sender: FDA-Public Use
  Company Number: US-ROCHE-620292

PATIENT

DRUGS (5)
  1. AVASTIN [Suspect]
     Indication: BREAST CANCER METASTATIC
     Dosage: 10 MG/KG, DAYS 1+AMP;15
     Route: 042
  2. HERCEPTIN [Suspect]
     Indication: BREAST CANCER METASTATIC
     Dosage: 4 MG/KG, UNK
     Route: 042
  3. PACLITAXEL [Suspect]
     Indication: BREAST CANCER METASTATIC
     Dosage: 80 MG/M2, DAYS1,8,15
     Route: 042
  4. CARBOPLATIN [Suspect]
     Indication: BREAST CANCER METASTATIC
     Dosage: 2 AUC, DAYS1,8,15
     Route: 042
  5. HERCEPTIN [Suspect]
     Dosage: 2 MG/KG, UNK
     Route: 042

REACTIONS (12)
  - ANAEMIA [None]
  - NEUTROPENIC INFECTION [None]
  - SKIN INFECTION [None]
  - CULTURE URINE POSITIVE [None]
  - ENDOCARDITIS [None]
  - BETA HAEMOLYTIC STREPTOCOCCAL INFECTION [None]
  - SEPSIS [None]
  - ESCHERICHIA INFECTION [None]
  - OEDEMA PERIPHERAL [None]
  - RASH ERYTHEMATOUS [None]
  - CARDIAC FAILURE [None]
  - HAEMOGLOBIN DECREASED [None]
